FAERS Safety Report 4386269-0 (Version None)
Quarter: 2004Q2

REPORT INFORMATION
  Report Type: 
  Country: None (occurrence: None)
  Receive Date: 20040622
  Receipt Date: 20040608
  Transmission Date: 20050107
  Serious: Yes (Other)
  Sender: FDA-Public Use
  Company Number: S04-NLD-02640-01

PATIENT
  Sex: Female

DRUGS (5)
  1. CITALOPRAM HYDROBROMIDE [Suspect]
     Indication: PANIC DISORDER
     Dosage: 20 MG QD PO
     Route: 048
     Dates: start: 20040310, end: 20040501
  2. ALPRAZOLAM [Concomitant]
  3. FERROUS FUMARATE [Concomitant]
  4. PANTOZOL (PANTOPRAZOLE SODIUM) [Concomitant]
  5. TEMAZEPAM [Concomitant]

REACTIONS (7)
  - ASTHENIA [None]
  - DECREASED ACTIVITY [None]
  - FATIGUE [None]
  - MOBILITY DECREASED [None]
  - PALLOR [None]
  - PANIC ATTACK [None]
  - PETIT MAL EPILEPSY [None]
